FAERS Safety Report 14244756 (Version 1)
Quarter: 2017Q4

REPORT INFORMATION
  Report Type: Spontaneous
  Country: US (occurrence: US)
  Receive Date: 20171201
  Receipt Date: 20171201
  Transmission Date: 20180321
  Serious: Yes (Death)
  Sender: FDA-Public Use
  Company Number: US-IMPAX LABORATORIES, INC-2017-IPXL-03428

PATIENT
  Age: 77 Year
  Sex: Male

DRUGS (3)
  1. MINOCYCLINE HYDROCHLORIDE. [Suspect]
     Active Substance: MINOCYCLINE HYDROCHLORIDE
     Indication: CAPNOCYTOPHAGA INFECTION
     Dosage: UNK
     Route: 065
  2. TRIMETHOPRIM SULFAMETHOXAZOLE [Suspect]
     Active Substance: SULFAMETHOXAZOLE\TRIMETHOPRIM
     Indication: CAPNOCYTOPHAGA INFECTION
     Dosage: UNK
     Route: 065
  3. IMIPENEM [Suspect]
     Active Substance: IMIPENEM
     Indication: CAPNOCYTOPHAGA INFECTION
     Dosage: UNK
     Route: 065

REACTIONS (1)
  - Respiratory failure [Fatal]
